FAERS Safety Report 4584522-9 (Version None)
Quarter: 2005Q1

REPORT INFORMATION
  Report Type: 
  Country: None (occurrence: None)
  Receive Date: 20050216
  Receipt Date: 20050209
  Transmission Date: 20050727
  Serious: Yes (Other)
  Sender: FDA-Public Use
  Company Number: IT-ABBOTT-05P-083-0290152-00

PATIENT
  Age: 35 Year
  Sex: Male

DRUGS (3)
  1. DEPAKENE [Suspect]
     Indication: AFFECTIVE DISORDER
     Dosage: 1000 MG Q AM AND 300 MG Q PM
     Route: 048
     Dates: start: 20031101
  2. FLUOXETINE HYDROCHLORIDE [Suspect]
     Indication: AFFECTIVE DISORDER
     Dosage: 40 MG Q AM AND 10 MG Q PM
     Route: 048
     Dates: start: 20031101
  3. MIRTAZAPINE [Suspect]
     Indication: AFFECTIVE DISORDER
     Route: 048
     Dates: start: 20031101

REACTIONS (2)
  - ROAD TRAFFIC ACCIDENT [None]
  - SLEEP ATTACKS [None]
